FAERS Safety Report 10019079 (Version 2)
Quarter: 2014Q2

REPORT INFORMATION
  Report Type: Spontaneous
  Country: US (occurrence: US)
  Receive Date: 20140318
  Receipt Date: 20140515
  Transmission Date: 20141212
  Serious: No
  Sender: FDA-Public Use
  Company Number: US-GILEAD-2014-0096905

PATIENT
  Sex: Female

DRUGS (3)
  1. LETAIRIS [Suspect]
     Indication: PULMONARY HYPERTENSION
     Dosage: 5 MG, QD
     Route: 065
     Dates: start: 20130528
  2. LETAIRIS [Suspect]
     Indication: SJOGREN^S SYNDROME
  3. REVATIO [Concomitant]

REACTIONS (3)
  - Fall [Unknown]
  - Dyspnoea [Unknown]
  - Dizziness [Unknown]
